FAERS Safety Report 10069081 (Version 3)
Quarter: 2014Q2

REPORT INFORMATION
  Report Type: Spontaneous
  Country: DE (occurrence: DE)
  Receive Date: 20140409
  Receipt Date: 20140612
  Transmission Date: 20141212
  Serious: Yes (Hospitalization, Other)
  Sender: FDA-Public Use
  Company Number: DE-GILEAD-2014-0099264

PATIENT
  Age: 72 Year
  Sex: Male
  Weight: 100 kg

DRUGS (13)
  1. RANOLAZINE [Suspect]
     Indication: CORONARY ARTERY DISEASE
     Dosage: 375 MG, BID
     Route: 048
     Dates: start: 20140218, end: 20140319
  2. RANOLAZINE [Suspect]
     Indication: ANGINA PECTORIS
  3. ASS [Concomitant]
     Indication: CORONARY ARTERY DISEASE
     Dosage: 100 MG, QD
     Dates: start: 2005
  4. SIMVASTATIN [Concomitant]
     Indication: CORONARY ARTERY DISEASE
     Dosage: 40 MG, QD
     Dates: start: 2005
  5. CARVEDILOL [Concomitant]
     Indication: CORONARY ARTERY DISEASE
     Dosage: 12.5 MG, BID
     Dates: start: 2005
  6. TORASEMID [Concomitant]
     Indication: CORONARY ARTERY DISEASE
     Dosage: UNK
     Dates: start: 2005
  7. TORASEMID [Concomitant]
     Indication: CARDIAC FAILURE
  8. TORASEMID [Concomitant]
     Indication: HYPERTENSION
  9. VICTOZA [Concomitant]
     Indication: TYPE 2 DIABETES MELLITUS
     Dosage: 1.8 MG, QD
     Dates: start: 2011
  10. ISDN [Concomitant]
     Indication: CORONARY ARTERY DISEASE
     Dosage: 40 MG, TID
     Dates: start: 2005
  11. ECURAL [Concomitant]
     Dosage: UNK
     Dates: start: 201403
  12. RAMIPRIL [Concomitant]
     Indication: HYPERTENSION
     Dosage: 5 MG, QD
  13. RAMIPRIL [Concomitant]
     Indication: CARDIAC FAILURE

REACTIONS (3)
  - Hypersensitivity vasculitis [Recovered/Resolved with Sequelae]
  - Pain [Not Recovered/Not Resolved]
  - Skin ulcer [Not Recovered/Not Resolved]
